FAERS Safety Report 16084877 (Version 1)
Quarter: 2019Q2

REPORT INFORMATION
  Report Type: Spontaneous
  Country: US (occurrence: US)
  Receive Date: 20190318
  Receipt Date: 20190318
  Transmission Date: 20190711
  Serious: Yes (Hospitalization)
  Sender: FDA-Public Use
  Company Number: None

PATIENT
  Age: 23 Year
  Sex: Male

DRUGS (1)
  1. KITABIS PAK [Suspect]
     Active Substance: TOBRAMYCIN
     Indication: CYSTIC FIBROSIS
     Dosage: ?          OTHER FREQUENCY:POUR CONTENTS OF 1;OTHER ROUTE:POUR CONTENTS OF 1 VIAL INTO NEBULIZER A?

REACTIONS (2)
  - Hospitalisation [None]
  - Cystic fibrosis [None]

NARRATIVE: CASE EVENT DATE: 20190315
